FAERS Safety Report 10314412 (Version 2)
Quarter: 2014Q3

REPORT INFORMATION
  Report Type: Spontaneous
  Country: US (occurrence: US)
  Receive Date: 20140718
  Receipt Date: 20140806
  Transmission Date: 20150326
  Serious: No
  Sender: FDA-Public Use
  Company Number: US-PFIZER INC-2014197419

PATIENT
  Age: 62 Year
  Sex: Female

DRUGS (6)
  1. CHANTIX [Suspect]
     Active Substance: VARENICLINE TARTRATE
     Indication: TOBACCO ABUSE
     Dosage: 0.5 MG, UNK
     Route: 048
     Dates: start: 20140701, end: 2014
  2. COREG [Suspect]
     Active Substance: CARVEDILOL
     Dosage: 4
  3. LISINOPRIL AND HYDROCHLOROTHIAZIDE [Concomitant]
     Active Substance: HYDROCHLOROTHIAZIDE\LISINOPRIL
     Dosage: 20MG LISINOPRIL /12.5MG HYDROCHLOROTHIAZIDE, BID
     Dates: start: 20140619
  4. CHANTIX [Suspect]
     Active Substance: VARENICLINE TARTRATE
     Indication: SMOKING CESSATION THERAPY
     Dosage: 1 MG, UNK
     Dates: start: 2014, end: 2014
  5. TORSEMIDE. [Concomitant]
     Active Substance: TORSEMIDE
     Dosage: 20 MG, PO BID
     Route: 048
     Dates: start: 20140619
  6. PRAVASTATIN [Concomitant]
     Active Substance: PRAVASTATIN\PRAVASTATIN SODIUM
     Dosage: 40 MG, 1X/DAY
     Route: 048
     Dates: start: 20140202

REACTIONS (1)
  - Blood pressure decreased [Unknown]
